FAERS Safety Report 5508405-2 (Version None)
Quarter: 2007Q4

REPORT INFORMATION
  Report Type: 
  Country: None (occurrence: None)
  Receive Date: 20071107
  Receipt Date: 20071101
  Transmission Date: 20080405
  Serious: Yes (Hospitalization, Disabling)
  Sender: FDA-Public Use
  Company Number: PHNU2006AU00878

PATIENT
  Age: 50 Year
  Sex: Male

DRUGS (1)
  1. LAMISIL [Suspect]
     Indication: TINEA PEDIS
     Dosage: 250 MG/D
     Route: 048
     Dates: start: 20060103, end: 20060106

REACTIONS (4)
  - BLISTER [None]
  - PHOTODERMATOSIS [None]
  - RASH [None]
  - SKIN TEST POSITIVE [None]
